FAERS Safety Report 25732709 (Version 1)
Quarter: 2025Q3

REPORT INFORMATION
  Report Type: Spontaneous
  Country: BR (occurrence: BR)
  Receive Date: 20250827
  Receipt Date: 20250827
  Transmission Date: 20251020
  Serious: Yes (Other)
  Sender: SANDOZ
  Company Number: BR-002147023-NVSC2025BR130741

PATIENT
  Age: 78 Year
  Sex: Male
  Weight: 77 kg

DRUGS (8)
  1. EXELON [Suspect]
     Active Substance: RIVASTIGMINE TARTRATE
     Indication: Dementia Alzheimer^s type
     Dosage: 4.6 MG, QD (5 PATCH, EXTENDED RELEASE, 9 MILLIGRAM)
     Route: 062
  2. EXELON [Suspect]
     Active Substance: RIVASTIGMINE TARTRATE
     Dosage: 9.5 MG, QD (10 PATCH, EXTENDED RELEASE, 18 MILLIGRAM)
     Route: 062
  3. CITALOPRAM HYDROBROMIDE [Concomitant]
     Active Substance: CITALOPRAM HYDROBROMIDE
     Indication: Product used for unknown indication
     Route: 065
  4. ESCITALOPRAM [Concomitant]
     Active Substance: ESCITALOPRAM OXALATE
     Indication: Product used for unknown indication
     Route: 065
  5. Fenofibrato Mylan [Concomitant]
     Indication: Product used for unknown indication
     Dosage: 250 MG, QD
     Route: 065
  6. SIMETHICONE (DIMETHICONE) [Concomitant]
     Active Substance: DIMETHICONE
     Indication: Product used for unknown indication
     Dosage: 125 MG, BID
     Route: 065
  7. Sinvastatina Accord [Concomitant]
     Indication: Product used for unknown indication
     Dosage: 20 MG, QD
     Route: 065
  8. TAMSULOSIN HYDROCHLORIDE [Concomitant]
     Active Substance: TAMSULOSIN HYDROCHLORIDE
     Indication: Product used for unknown indication
     Dosage: 0.4 MG, QD
     Route: 065

REACTIONS (17)
  - Dementia [Unknown]
  - Seizure [Unknown]
  - Ischaemic stroke [Unknown]
  - Memory impairment [Unknown]
  - Disorientation [Unknown]
  - Irritability [Unknown]
  - Libido increased [Unknown]
  - Cognitive disorder [Unknown]
  - Mood altered [Unknown]
  - Metabolic disorder [Unknown]
  - Cardiac disorder [Unknown]
  - Apathy [Unknown]
  - Weight increased [Unknown]
  - Confusional state [Unknown]
  - Dizziness [Unknown]
  - Aggression [Unknown]
  - Headache [Unknown]

NARRATIVE: CASE EVENT DATE: 20181001
